FAERS Safety Report 5082968-6 (Version None)
Quarter: 2006Q3

REPORT INFORMATION
  Report Type: 
  Country: None (occurrence: None)
  Receive Date: 20060814
  Receipt Date: 20060731
  Transmission Date: 20061208
  Serious: Yes (Hospitalization)
  Sender: FDA-Public Use
  Company Number: S06-SWE-03140-1

PATIENT
  Age: 19 Year
  Sex: Male

DRUGS (4)
  1. CITALOPRAM HYDROBROMIDE [Suspect]
     Indication: DEPRESSION
     Dates: start: 20060501, end: 20060501
  2. CITALOPRAM HYDROBROMIDE [Suspect]
     Indication: DEPRESSION
  3. PROPAVAN (PROPIOMAZONE MALEATE) [Suspect]
     Indication: DEPRESSION
     Dates: start: 20060501, end: 20060501
  4. PROPAVAN (PROPIOMAZINE MALEATE) [Suspect]
     Indication: DEPRESSION

REACTIONS (3)
  - LOSS OF CONSCIOUSNESS [None]
  - MULTIPLE DRUG OVERDOSE INTENTIONAL [None]
  - SUICIDE ATTEMPT [None]
